FAERS Safety Report 10149513 (Version 1)
Quarter: 2014Q2

REPORT INFORMATION
  Report Type: Spontaneous
  Country: US (occurrence: None)
  Receive Date: 20140501
  Receipt Date: 20140501
  Transmission Date: 20141212
  Serious: Yes (Other)
  Sender: FDA-Public Use
  Company Number: None

PATIENT
  Age: 62 Year
  Sex: Female
  Weight: 48.54 kg

DRUGS (10)
  1. PROLIA DENOSUMAB AMGEN [Suspect]
     Indication: OSTEOPOROSIS
     Dosage: 1 EVERY 6 MOS.
     Dates: start: 20140129
  2. PROLIA DENOSUMAB AMGEN [Suspect]
     Indication: DRUG HYPERSENSITIVITY
     Dosage: 1 EVERY 6 MOS.
     Dates: start: 20140129
  3. HYDROXYCHLOROQUINE [Concomitant]
  4. DILTIAZEM [Concomitant]
  5. LOSARTAN POTASSIUM [Concomitant]
  6. ATIVAN [Concomitant]
  7. VALIUM [Concomitant]
  8. FEXOFINADINE HCL [Concomitant]
  9. FLECANIDE ACETATE (AMBOCOR) [Concomitant]
  10. OMEPRAZOLE [Concomitant]

REACTIONS (16)
  - Blood urine present [None]
  - Chromaturia [None]
  - Fatigue [None]
  - Pyrexia [None]
  - Heart rate irregular [None]
  - Arrhythmia [None]
  - Renal pain [None]
  - Skin discolouration [None]
  - Pain in extremity [None]
  - Arthralgia [None]
  - Hypersensitivity [None]
  - Dermatitis contact [None]
  - Temperature intolerance [None]
  - Urinary tract inflammation [None]
  - Genital tract inflammation [None]
  - Cardiac disorder [None]
